FAERS Safety Report 7504782-1 (Version None)
Quarter: 2011Q2

REPORT INFORMATION
  Report Type: 
  Country: None (occurrence: None)
  Receive Date: 20110525
  Receipt Date: 20110412
  Transmission Date: 20111010
  Serious: No
  Sender: FDA-Public Use
  Company Number: US-AMGEN-USASP2011019422

PATIENT
  Age: 40 Year
  Sex: Male

DRUGS (3)
  1. ARANESP [Suspect]
     Indication: RENAL FAILURE CHRONIC
     Dates: end: 20110101
  2. EPOGEN [Suspect]
     Indication: RENAL FAILURE CHRONIC
     Dosage: 4000 IU, QWK
     Dates: start: 20110221, end: 20110413
  3. EPOGEN [Suspect]
     Dates: start: 20110221, end: 20110413

REACTIONS (2)
  - URTICARIA [None]
  - PRURITUS [None]
